FAERS Safety Report 9672085 (Version 1)
Quarter: 2013Q4

REPORT INFORMATION
  Report Type: Spontaneous
  Country: US (occurrence: US)
  Receive Date: 20131106
  Receipt Date: 20131106
  Transmission Date: 20140711
  Serious: Yes (Other)
  Sender: FDA-Public Use
  Company Number: US-ASTRAZENECA-2013SE80195

PATIENT
  Age: 80 Year
  Sex: Male
  Weight: 81.6 kg

DRUGS (8)
  1. TOPROL-XL [Suspect]
     Route: 048
  2. TOPROL-XL [Suspect]
     Route: 048
     Dates: start: 201310
  3. LIPITOR [Suspect]
     Indication: BLOOD CHOLESTEROL INCREASED
     Dosage: DAILY
     Route: 048
  4. ASPIRIN [Concomitant]
     Route: 048
  5. ZANTAC [Concomitant]
     Indication: ABDOMINAL DISCOMFORT
     Dosage: DAILY
     Route: 048
  6. PLAVIX [Concomitant]
     Indication: ANTICOAGULANT THERAPY
     Dosage: DAILY
     Route: 048
  7. B12 [Concomitant]
     Route: 048
  8. FOLIC ACID [Concomitant]
     Route: 048

REACTIONS (10)
  - Post procedural haemorrhage [Unknown]
  - Nephrolithiasis [Unknown]
  - Hypertension [Unknown]
  - Dizziness [Unknown]
  - Diarrhoea [Unknown]
  - Sleep disorder [Unknown]
  - Pruritus [Unknown]
  - Hypotension [Unknown]
  - Gait disturbance [Unknown]
  - Condition aggravated [Unknown]
